FAERS Safety Report 21095401 (Version 3)
Quarter: 2022Q3

REPORT INFORMATION
  Report Type: Report from Study
  Country: PL (occurrence: PL)
  Receive Date: 20220718
  Receipt Date: 20220803
  Transmission Date: 20221026
  Serious: Yes (Other)
  Sender: FDA-Public Use
  Company Number: PL-Merck Healthcare KGaA-9332496

PATIENT
  Age: 56 Year
  Sex: Female

DRUGS (17)
  1. IRINOTECAN HYDROCHLORIDE [Suspect]
     Active Substance: IRINOTECAN HYDROCHLORIDE
     Indication: Colorectal cancer metastatic
     Dosage: FREQ:2 WK;
     Dates: start: 20200603
  2. LEUCOVORIN [Suspect]
     Active Substance: LEUCOVORIN
     Indication: Colorectal cancer metastatic
     Dosage: FREQ:2 WK;
     Dates: start: 20200603
  3. CETUXIMAB [Suspect]
     Active Substance: CETUXIMAB
     Indication: Colorectal cancer metastatic
     Dosage: FREQ:2 WK;
     Dates: start: 20200603
  4. FLUOROURACIL [Suspect]
     Active Substance: FLUOROURACIL
     Indication: Colorectal cancer metastatic
     Dosage: FREQ:2 WK;
     Dates: start: 20200603
  5. FLUOROURACIL [Suspect]
     Active Substance: FLUOROURACIL
     Dosage: FREQ:2 WK;
     Dates: start: 20200603
  6. THIETHYLPERAZINUM [Concomitant]
     Dates: start: 20200603, end: 20210513
  7. ESCITALOPRAM [Concomitant]
     Active Substance: ESCITALOPRAM OXALATE
     Dates: start: 20200601
  8. ONDANSETRON [Concomitant]
     Active Substance: ONDANSETRON
     Dates: start: 20200603
  9. ALPRAZOLAM [Concomitant]
     Active Substance: ALPRAZOLAM
     Dates: start: 20200601
  10. OMEPRAZOLE [Concomitant]
     Active Substance: OMEPRAZOLE
     Dates: start: 20200603
  11. MEGESTROL ACETATE [Concomitant]
     Active Substance: MEGESTROL ACETATE
     Dates: start: 20200603
  12. HYDROXYZINI HYDROCHLORIDUM [Concomitant]
     Dates: start: 20200601, end: 20210513
  13. PREDNISONE [Concomitant]
     Active Substance: PREDNISONE
     Dates: start: 20200603, end: 20210513
  14. HYDROCORTISONE [Concomitant]
     Active Substance: HYDROCORTISONE
     Dates: start: 20200603, end: 20210513
  15. CLEMASTINUM [CLEMASTINE] [Concomitant]
     Dates: start: 20200603, end: 20210513
  16. DIAZEPAM [Concomitant]
     Active Substance: DIAZEPAM
     Dates: start: 20200601
  17. FAMOTIDINE [Concomitant]
     Active Substance: FAMOTIDINE
     Dates: start: 20200603, end: 20210513

REACTIONS (3)
  - Paronychia [Recovered/Resolved]
  - Conjunctivitis [Recovered/Resolved]
  - Rash [Recovered/Resolved]

NARRATIVE: CASE EVENT DATE: 20200702
